FAERS Safety Report 19894291 (Version 1)
Quarter: 2021Q3

REPORT INFORMATION
  Report Type: Spontaneous
  Country: US (occurrence: US)
  Receive Date: 20210928
  Receipt Date: 20210928
  Transmission Date: 20211014
  Serious: No
  Sender: FDA-Public Use
  Company Number: None

PATIENT
  Age: 36 Year
  Sex: Female
  Weight: 67.5 kg

DRUGS (1)
  1. REGEN?COV [Suspect]
     Active Substance: CASIRIVIMAB\IMDEVIMAB
     Indication: COVID-19
     Route: 042
     Dates: start: 20210928, end: 20210928

REACTIONS (7)
  - Dizziness [None]
  - Nasopharyngitis [None]
  - Dyspnoea [None]
  - Altered state of consciousness [None]
  - Vision blurred [None]
  - Muscular weakness [None]
  - Syncope [None]

NARRATIVE: CASE EVENT DATE: 20210928
